FAERS Safety Report 4733414-0 (Version None)
Quarter: 2005Q3

REPORT INFORMATION
  Report Type: 
  Country: None (occurrence: None)
  Receive Date: 20050729
  Receipt Date: 20050719
  Transmission Date: 20060218
  Serious: Yes (Hospitalization)
  Sender: FDA-Public Use
  Company Number: HQWYE002610MAR05

PATIENT
  Age: 3 Year
  Sex: Female

DRUGS (5)
  1. CHILDREN'S ADVIL [Suspect]
     Indication: PYREXIA
     Dosage: 100 MG 3X PER 1 DAY ORAL
     Route: 048
     Dates: start: 20050204, end: 20050208
  2. NIFLURIL (NIFLUMIC ACID) [Suspect]
     Indication: PYREXIA
     Dosage: 400 MG 1X PER 1 DAY RECTAL
     Route: 054
     Dates: start: 20050207, end: 20050208
  3. DOLIPRANE (PARACETAMOL) [Concomitant]
  4. BRONCHOKOD (CARBOCISTEINE) [Concomitant]
  5. CEFPODOXIME PROXETIL [Concomitant]

REACTIONS (7)
  - CONDITION AGGRAVATED [None]
  - GENERAL PHYSICAL HEALTH DETERIORATION [None]
  - INFECTION [None]
  - LYMPHOPENIA [None]
  - PLEURISY [None]
  - PNEUMONIA STREPTOCOCCAL [None]
  - T-LYMPHOCYTE COUNT DECREASED [None]
